FAERS Safety Report 18200295 (Version 1)
Quarter: 2020Q3

REPORT INFORMATION
  Report Type: Spontaneous
  Country: US (occurrence: US)
  Receive Date: 20200827
  Receipt Date: 20200827
  Transmission Date: 20201103
  Serious: No
  Sender: FDA-Public Use
  Company Number: US-AMGEN INC.-USASP2020137646

PATIENT
  Age: 30 Year
  Sex: Female

DRUGS (2)
  1. AIMOVIG [Suspect]
     Active Substance: ERENUMAB-AOOE
     Indication: MIGRAINE PROPHYLAXIS
     Dosage: 70 MILLIGRAM, QMO
     Route: 030
     Dates: start: 20200309, end: 2020
  2. AIMOVIG [Suspect]
     Active Substance: ERENUMAB-AOOE
     Dosage: 140 MILLIGRAM, QMO
     Route: 030
     Dates: start: 202005

REACTIONS (2)
  - Incorrect route of product administration [Unknown]
  - Intra-uterine contraceptive device insertion [Unknown]

NARRATIVE: CASE EVENT DATE: 20200309
